FAERS Safety Report 18218288 (Version 1)
Quarter: 2020Q3

REPORT INFORMATION
  Report Type: Spontaneous
  Country: US (occurrence: US)
  Receive Date: 20200901
  Receipt Date: 20200901
  Transmission Date: 20201103
  Serious: No
  Sender: FDA-Public Use
  Company Number: US-AKRON, INC.-2089284

PATIENT
  Age: 74 Year
  Sex: Male

DRUGS (1)
  1. DORZOLAMIDE HCL TIMOLOL MALEATE [Suspect]
     Active Substance: DORZOLAMIDE HYDROCHLORIDE\TIMOLOL MALEATE
     Route: 047

REACTIONS (9)
  - Skin wrinkling [Recovering/Resolving]
  - Eye swelling [Recovering/Resolving]
  - Blister [Recovering/Resolving]
  - Furuncle [Recovering/Resolving]
  - Skin atrophy [Recovering/Resolving]
  - Acne [Recovering/Resolving]
  - Dermal cyst [Recovering/Resolving]
  - Eye discharge [Recovering/Resolving]
  - Eyelid exfoliation [Recovering/Resolving]
